FAERS Safety Report 5594535-6 (Version None)
Quarter: 2008Q1

REPORT INFORMATION
  Report Type: 
  Country: None (occurrence: None)
  Receive Date: 20080117
  Receipt Date: 20080109
  Transmission Date: 20080703
  Serious: Yes (Hospitalization)
  Sender: FDA-Public Use
  Company Number: JP-JNJFOC-20071109507

PATIENT
  Sex: Female
  Weight: 49 kg

DRUGS (10)
  1. RISPERDAL [Suspect]
     Indication: SCHIZOPHRENIA
     Route: 048
  2. LITHIUM CARBONATE [Suspect]
     Indication: BIPOLAR I DISORDER
     Route: 048
  3. BROTIZOLAM [Concomitant]
     Indication: INSOMNIA
     Route: 048
  4. SENNOSIDE [Concomitant]
     Indication: CONSTIPATION
     Route: 048
  5. LAC-B [Concomitant]
     Indication: GASTROENTERITIS
     Route: 048
  6. MAGLAX [Concomitant]
     Indication: CONSTIPATION
     Route: 048
  7. ANCHU-SAN [Concomitant]
     Indication: BIPOLAR I DISORDER
     Route: 048
  8. NIFEDIPINE [Concomitant]
     Indication: HYPERTENSION
  9. MAGNESIUM OXIDE [Concomitant]
     Indication: CONSTIPATION
  10. TOKISHAKUYAKUSAN [Concomitant]
     Indication: BIPOLAR I DISORDER

REACTIONS (10)
  - ABDOMINAL PAIN [None]
  - ALTERED STATE OF CONSCIOUSNESS [None]
  - CONVULSION [None]
  - ELECTROCARDIOGRAM QT PROLONGED [None]
  - GASTRIC DILATATION [None]
  - HYPOKALAEMIA [None]
  - HYPONATRAEMIA [None]
  - POLYDIPSIA PSYCHOGENIC [None]
  - SYNCOPE [None]
  - WATER INTOXICATION [None]
